FAERS Safety Report 17638983 (Version 3)
Quarter: 2021Q1

REPORT INFORMATION
  Report Type: Spontaneous
  Country: US (occurrence: US)
  Receive Date: 20200407
  Receipt Date: 20210215
  Transmission Date: 20210419
  Serious: Yes (Hospitalization, Congenital Anomaly, Other)
  Sender: FDA-Public Use
  Company Number: US-PURDUE PHARMA-USA-2020-0151001

PATIENT
  Age: 51 Year
  Sex: Female

DRUGS (9)
  1. OXYCONTIN [Suspect]
     Active Substance: OXYCODONE HYDROCHLORIDE
     Dosage: 40 MG, TID PRN
     Route: 048
     Dates: start: 2001, end: 2017
  2. XANAX [Concomitant]
     Active Substance: ALPRAZOLAM
     Indication: ANXIETY
     Dosage: 1 MG, TWO TIMES A DAY
     Route: 048
  3. OXYCONTIN [Suspect]
     Active Substance: OXYCODONE HYDROCHLORIDE
     Indication: ROAD TRAFFIC ACCIDENT
     Dosage: 10 MG, DAILY
     Route: 048
     Dates: start: 1999
  4. OXYCODONE HCL TABLETS (RHODES 91?490) [Suspect]
     Active Substance: OXYCODONE HYDROCHLORIDE
     Indication: PRODUCT USED FOR UNKNOWN INDICATION
     Dosage: UNKNOWN
     Route: 065
  5. OXYCONTIN [Suspect]
     Active Substance: OXYCODONE HYDROCHLORIDE
     Indication: PAIN
     Dosage: 20 MG, DAILY
     Route: 048
     Dates: start: 1999
  6. OXYCODONE HYDROCHLORIDE (SIMILAR TO NDA 22?272) [Suspect]
     Active Substance: OXYCODONE HYDROCHLORIDE
     Indication: PAIN
     Dosage: 40MG/ TWICE A DAY
     Route: 065
  7. OXYCONTIN [Suspect]
     Active Substance: OXYCODONE HYDROCHLORIDE
     Dosage: 40MG, 2 PER DAY
     Route: 048
     Dates: start: 2001
  8. COUMADIN [Concomitant]
     Active Substance: WARFARIN SODIUM
     Indication: ANTICOAGULANT THERAPY
     Dosage: 25 MG TABLET, 3 TABLETS BEDTIME
     Route: 065
     Dates: start: 20060923, end: 20060924
  9. TYLENOL [Concomitant]
     Active Substance: ACETAMINOPHEN
     Indication: PAIN
     Dosage: 325MG, 2 TABLETS EVERY 4 HOURS
     Route: 048

REACTIONS (22)
  - Open fracture [Unknown]
  - Road traffic accident [Unknown]
  - Cerebrovascular accident [Unknown]
  - Overdose [Recovered/Resolved]
  - Withdrawal syndrome [Unknown]
  - Concussion [Unknown]
  - Cardiac disorder [Unknown]
  - Off label use [Recovered/Resolved]
  - Unevaluable event [Unknown]
  - Drug dependence [Unknown]
  - Laziness [Unknown]
  - Vomiting [Unknown]
  - Headache [Unknown]
  - Overweight [Unknown]
  - Blindness [Unknown]
  - Seizure [Unknown]
  - Amnesia [Unknown]
  - Respiratory rate decreased [Unknown]
  - Decreased interest [Unknown]
  - Dizziness [Unknown]
  - Loss of consciousness [Unknown]
  - Migraine [Unknown]

NARRATIVE: CASE EVENT DATE: 2001
